FAERS Safety Report 8889583 (Version 2)
Quarter: 2012Q4

REPORT INFORMATION
  Report Type: 
  Country: US (occurrence: US)
  Receive Date: 20121107
  Receipt Date: 20121119
  Transmission Date: 20130627
  Serious: Yes (Other)
  Sender: FDA-Public Use
  Company Number: US-PERRIGO-12US008599

PATIENT
  Age: 8 Year
  Sex: Male

DRUGS (2)
  1. DIBROMM DM PE GRP LIQ 987 [Suspect]
     Indication: COUGH
     Dosage: 10 mL, single
     Route: 048
     Dates: start: 20121001, end: 20121001
  2. DIBROMM DM PE GRP LIQ 987 [Suspect]
     Indication: NASOPHARYNGITIS

REACTIONS (2)
  - Dyspnoea [Recovered/Resolved]
  - Eye swelling [Recovered/Resolved]
